FAERS Safety Report 25351342 (Version 3)
Quarter: 2025Q2

REPORT INFORMATION
  Report Type: Report from Study
  Country: US (occurrence: US)
  Receive Date: 20250523
  Receipt Date: 20250605
  Transmission Date: 20250716
  Serious: Yes (Other)
  Sender: SUNOVION
  Company Number: US-SMPA-2025SPA005279AA

PATIENT

DRUGS (2)
  1. ORGOVYX [Suspect]
     Active Substance: RELUGOLIX
     Indication: Prostate cancer
     Route: 048
  2. ORGOVYX [Suspect]
     Active Substance: RELUGOLIX
     Dosage: 120 MG, QD
     Route: 048
     Dates: start: 20250228

REACTIONS (6)
  - Immunodeficiency [Unknown]
  - Groin pain [Unknown]
  - Emotional distress [Unknown]
  - White blood cell count decreased [Unknown]
  - Myalgia [Unknown]
  - Arthralgia [Unknown]
